FAERS Safety Report 26011292 (Version 1)
Quarter: 2025Q4

REPORT INFORMATION
  Report Type: Other
  Country: EU (occurrence: EU)
  Receive Date: 20251107
  Receipt Date: 20251107
  Transmission Date: 20260117
  Serious: Yes (Death, Hospitalization, Other)
  Sender: BIOCON
  Company Number: None

PATIENT

DRUGS (5)
  1. ADALIMUMAB [Suspect]
     Active Substance: ADALIMUMAB
     Indication: Ankylosing spondylitis
     Dosage: UNK
     Route: 065
  2. ADALIMUMAB [Suspect]
     Active Substance: ADALIMUMAB
  3. ADALIMUMAB [Suspect]
     Active Substance: ADALIMUMAB
  4. ADALIMUMAB [Suspect]
     Active Substance: ADALIMUMAB
  5. ADALIMUMAB [Suspect]
     Active Substance: ADALIMUMAB

REACTIONS (8)
  - Pulmonary embolism [Fatal]
  - Pelvic venous thrombosis [Fatal]
  - Peripheral swelling [Fatal]
  - Musculoskeletal discomfort [Fatal]
  - Dyspnoea [Fatal]
  - Seizure [Fatal]
  - Oxygen saturation decreased [Recovered/Resolved]
  - Pneumonia aspiration [Recovered/Resolved]

NARRATIVE: CASE EVENT DATE: 20221228
